FAERS Safety Report 25417793 (Version 2)
Quarter: 2025Q2

REPORT INFORMATION
  Report Type: Spontaneous
  Country: US (occurrence: US)
  Receive Date: 20250610
  Receipt Date: 20250626
  Transmission Date: 20250716
  Serious: Yes (Other)
  Sender: ELI LILLY AND COMPANY
  Company Number: US-ELI_LILLY_AND_COMPANY-US202506002764

PATIENT
  Age: 75 Year
  Sex: Female

DRUGS (1)
  1. REYVOW [Suspect]
     Active Substance: LASMIDITAN
     Indication: Product used for unknown indication
     Route: 065

REACTIONS (5)
  - Myasthenia gravis [Unknown]
  - Atrial fibrillation [Unknown]
  - Migraine [Unknown]
  - Headache [Unknown]
  - Heart rate increased [Unknown]
